FAERS Safety Report 5238242-8 (Version None)
Quarter: 2007Q1

REPORT INFORMATION
  Report Type: 
  Country: None (occurrence: None)
  Receive Date: 20070215
  Receipt Date: 20070206
  Transmission Date: 20070707
  Serious: Yes (Death, Other)
  Sender: FDA-Public Use
  Company Number: AU-AVENTIS-200521256GDDC

PATIENT
  Sex: Female

DRUGS (2)
  1. TAXOTERE [Suspect]
  2. HERCEPTIN [Concomitant]

REACTIONS (3)
  - AKINESIA [None]
  - DEATH [None]
  - PARALYSIS FLACCID [None]
